FAERS Safety Report 5449443-8 (Version None)
Quarter: 2007Q3

REPORT INFORMATION
  Report Type: 
  Country: None (occurrence: None)
  Receive Date: 20070911
  Receipt Date: 20070906
  Transmission Date: 20080115
  Serious: Yes (Other)
  Sender: FDA-Public Use
  Company Number: US-PFIZER INC-2007074568

PATIENT
  Sex: Male
  Weight: 86.2 kg

DRUGS (6)
  1. CELEBREX [Suspect]
     Indication: HEADACHE
  2. CELEBREX [Suspect]
     Indication: ARTHRALGIA
  3. MOTRIN [Concomitant]
  4. TYLENOL (CAPLET) [Concomitant]
  5. BENADRYL [Concomitant]
  6. FLEXTRA-DS [Concomitant]

REACTIONS (13)
  - DRUG ERUPTION [None]
  - FURUNCLE [None]
  - LIP DISCOLOURATION [None]
  - PARAESTHESIA [None]
  - PENILE SWELLING [None]
  - PIGMENTATION DISORDER [None]
  - PRURITUS [None]
  - PYREXIA [None]
  - RASH [None]
  - RASH MACULAR [None]
  - SKIN ATROPHY [None]
  - SKIN DISCOLOURATION [None]
  - SKIN LESION [None]
